FAERS Safety Report 23884593 (Version 1)
Quarter: 2024Q2

REPORT INFORMATION
  Report Type: Spontaneous
  Country: US (occurrence: US)
  Receive Date: 20240522
  Receipt Date: 20240522
  Transmission Date: 20240716
  Serious: Yes (Other)
  Sender: FDA-Public Use
  Company Number: US-009507513-2405USA004782

PATIENT
  Age: 75 Year
  Sex: Female

DRUGS (1)
  1. KEYTRUDA [Suspect]
     Active Substance: PEMBROLIZUMAB
     Indication: Malignant melanoma
     Dosage: UNK

REACTIONS (5)
  - Cardiogenic shock [Unknown]
  - Acute myocardial infarction [Unknown]
  - Multiple organ dysfunction syndrome [Unknown]
  - Immune-mediated myocarditis [Unknown]
  - Bradycardia [Unknown]
